FAERS Safety Report 8020185-8 (Version None)
Quarter: 2012Q1

REPORT INFORMATION
  Report Type: 
  Country: None (occurrence: None)
  Receive Date: 20120103
  Receipt Date: 20111223
  Transmission Date: 20120608
  Serious: Yes (Other)
  Sender: FDA-Public Use
  Company Number: US-ROCHE-1014553

PATIENT
  Sex: Male
  Weight: 90.346 kg

DRUGS (15)
  1. GLIMEPIRIDE [Concomitant]
     Indication: DIABETES MELLITUS
     Route: 048
  2. AMARYL [Concomitant]
  3. METOPROLOL TARTRATE [Concomitant]
     Indication: HYPERTENSION
     Route: 048
  4. SIMVASTATIN [Concomitant]
     Indication: HYPERLIPIDAEMIA
     Route: 048
  5. ZOCOR [Concomitant]
  6. COLACE [Concomitant]
  7. ACETAMINOPHEN [Concomitant]
  8. MULTI-VITAMIN [Concomitant]
  9. ZELBORAF [Suspect]
     Indication: MALIGNANT MELANOMA
     Route: 048
     Dates: start: 20111026, end: 20111104
  10. ZELBORAF [Suspect]
     Dates: start: 20111127
  11. PIOGLITAZONE [Concomitant]
     Indication: DIABETES MELLITUS
     Route: 048
  12. SERTRALINE HYDROCHLORIDE [Concomitant]
     Indication: DEPRESSION
     Route: 048
  13. ACTOS [Concomitant]
  14. FERROUS SULFATE TAB [Concomitant]
  15. IBUPROFEN (ADVIL) [Concomitant]

REACTIONS (4)
  - SKIN TOXICITY [None]
  - ERYTHEMA [None]
  - SINUSITIS [None]
  - PHOTOSENSITIVITY REACTION [None]
